FAERS Safety Report 8833549 (Version 2)
Quarter: 2013Q4

REPORT INFORMATION
  Report Type: Spontaneous
  Country: US (occurrence: US)
  Receive Date: 20121010
  Receipt Date: 20131101
  Transmission Date: 20140711
  Serious: No
  Sender: FDA-Public Use
  Company Number: US-009507513-1209USA011708

PATIENT
  Age: 19 Year
  Sex: Female
  Weight: 68.27 kg

DRUGS (1)
  1. IMPLANON [Suspect]
     Indication: CONTRACEPTION
     Dosage: UNK
     Route: 023
     Dates: start: 20111019

REACTIONS (3)
  - Vomiting [Unknown]
  - Nausea [Unknown]
  - Metrorrhagia [Unknown]
